FAERS Safety Report 16738106 (Version 1)
Quarter: 2019Q3

REPORT INFORMATION
  Report Type: Report from Study
  Country: CO (occurrence: CO)
  Receive Date: 20190824
  Receipt Date: 20190824
  Transmission Date: 20191005
  Serious: Yes (Death, Life-Threatening, Hospitalization)
  Sender: FDA-Public Use
  Company Number: PHHY2019CO160446

PATIENT
  Age: 73 Year
  Sex: Male
  Weight: 68 kg

DRUGS (1)
  1. JADENU [Suspect]
     Active Substance: DEFERASIROX
     Indication: THALASSAEMIA
     Dosage: 1080 MG, QD
     Route: 048
     Dates: start: 20190614

REACTIONS (7)
  - Pyrexia [Recovered/Resolved]
  - Death [Fatal]
  - Hypersensitivity [Unknown]
  - Platelet count decreased [Recovered/Resolved]
  - Petechiae [Unknown]
  - Pneumonia fungal [Unknown]
  - Tongue discolouration [Unknown]

NARRATIVE: CASE EVENT DATE: 20190816
